FAERS Safety Report 19031853 (Version 2)
Quarter: 2021Q2

REPORT INFORMATION
  Report Type: Spontaneous
  Country: US (occurrence: US)
  Receive Date: 20210319
  Receipt Date: 20210615
  Transmission Date: 20210717
  Serious: No
  Sender: FDA-Public Use
  Company Number: US-PFIZER INC-2021224060

PATIENT
  Age: 67 Year
  Sex: Female

DRUGS (2)
  1. EUCRISA [Suspect]
     Active Substance: CRISABOROLE
     Dosage: 2X/DAY (APPLY TO AFFECTED AREAS)
  2. EUCRISA [Suspect]
     Active Substance: CRISABOROLE
     Indication: PAIN IN EXTREMITY
     Dosage: UNK, 60G TUBE

REACTIONS (7)
  - Peripheral swelling [Unknown]
  - Drug effective for unapproved indication [Unknown]
  - Burning sensation [Unknown]
  - Skin disorder [Unknown]
  - Pain [Not Recovered/Not Resolved]
  - Pruritus [Unknown]
  - Off label use [Unknown]
